FAERS Safety Report 9767553 (Version 1)
Quarter: 2013Q4

REPORT INFORMATION
  Report Type: Spontaneous
  Country: US (occurrence: US)
  Receive Date: 20131217
  Receipt Date: 20131217
  Transmission Date: 20140711
  Serious: No
  Sender: FDA-Public Use
  Company Number: US-GILEAD-2009-0024510

PATIENT
  Age: 40 Year
  Sex: Female
  Weight: 45.36 kg

DRUGS (1)
  1. VIREAD [Suspect]
     Indication: CHRONIC HEPATITIS B
     Route: 048

REACTIONS (3)
  - Muscle fatigue [Recovering/Resolving]
  - Nausea [Recovering/Resolving]
  - Abdominal pain [Recovering/Resolving]
